FAERS Safety Report 8879099 (Version 1)
Quarter: 2012Q4

REPORT INFORMATION
  Report Type: Spontaneous
  Country: US (occurrence: None)
  Receive Date: 20121031
  Receipt Date: 20121031
  Transmission Date: 20130627
  Serious: No
  Sender: FDA-Public Use
  Company Number: None

PATIENT
  Age: 81 Year
  Sex: Female

DRUGS (5)
  1. REVLIMID [Suspect]
     Indication: MULTIPLE MYELOMA
     Dosage: 2 doses
     Route: 048
     Dates: start: 201209
  2. AMLODIPINE [Concomitant]
  3. PRAVASTATIN [Concomitant]
  4. HYDROCODONE/APAP [Concomitant]
  5. ASA [Concomitant]

REACTIONS (1)
  - Neuropathy peripheral [None]
